FAERS Safety Report 9153701 (Version 1)
Quarter: 2013Q1

REPORT INFORMATION
  Report Type: Spontaneous
  Country: US (occurrence: None)
  Receive Date: 20130207
  Receipt Date: 20130207
  Transmission Date: 20140127
  Serious: Yes (Other)
  Sender: FDA-Public Use
  Company Number: ACO_33955_2013

PATIENT
  Age: 67 Year
  Sex: Female
  Weight: 61.2 kg

DRUGS (9)
  1. AMPYRA (DALFAMPRIDINE) TABLET, 10MG [Suspect]
     Indication: GAIT DISTURBANCE
     Route: 048
     Dates: start: 201301, end: 20130118
  2. ANTIBIOTICS (ANTIBIOTICS) [Suspect]
     Indication: URINARY TRACT INFECTION
     Route: 048
  3. BETASERON (ALBUMIN HUMAN, GLUCOSE, INTERFERON BETA) [Concomitant]
  4. VERAPAMIL (VERAPAMIL HYDROCHLORIDE) [Concomitant]
  5. ENALAPRIL (ENALAPRIL MALEATE) [Concomitant]
  6. SERTRALINE (SERTRALINE) (SERTRALINE) [Concomitant]
  7. TIZANIDINE (TIZANIDINE HYDROCHLORIDE) [Concomitant]
  8. LYRICA (PREGABLIN) [Concomitant]
  9. ATENOLOL (ATENOLOL) [Concomitant]

REACTIONS (2)
  - Hallucination, visual [None]
  - Abnormal sleep-related event [None]
